FAERS Safety Report 9954489 (Version 1)
Quarter: 2014Q1

REPORT INFORMATION
  Report Type: Report from Study
  Country: US (occurrence: US)
  Receive Date: 20140304
  Receipt Date: 20140304
  Transmission Date: 20141002
  Serious: No
  Sender: FDA-Public Use
  Company Number: US-ABBVIE-13P-163-1083056-00

PATIENT
  Age: 18 Year
  Sex: Female
  Weight: 55.84 kg

DRUGS (2)
  1. HUMIRA [Suspect]
     Indication: JUVENILE IDIOPATHIC ARTHRITIS
     Route: 058
     Dates: start: 201302
  2. DROSPIRENONE W/ETHINYLESTRADIOL [Concomitant]
     Indication: CONTRACEPTION

REACTIONS (6)
  - Device malfunction [Unknown]
  - Incorrect dose administered [Unknown]
  - Injection site pain [Recovered/Resolved]
  - Injection site urticaria [Recovered/Resolved]
  - Wrong technique in drug usage process [Unknown]
  - Incorrect dose administered [Unknown]
